FAERS Safety Report 13564358 (Version 4)
Quarter: 2017Q3

REPORT INFORMATION
  Report Type: Spontaneous
  Country: US (occurrence: US)
  Receive Date: 20170519
  Receipt Date: 20170725
  Transmission Date: 20171127
  Serious: No
  Sender: FDA-Public Use
  Company Number: US-PFIZER INC-2017215108

PATIENT
  Age: 63 Year
  Sex: Female

DRUGS (1)
  1. XALKORI [Suspect]
     Active Substance: CRIZOTINIB
     Indication: LUNG NEOPLASM MALIGNANT
     Dosage: 250 MG, TWICE DAILY BY MOUTH
     Route: 048
     Dates: start: 20170427

REACTIONS (3)
  - Hallucination [Unknown]
  - Restlessness [Unknown]
  - Vomiting [Unknown]

NARRATIVE: CASE EVENT DATE: 20170515
